FAERS Safety Report 8881541 (Version 1)
Quarter: 2012Q4

REPORT INFORMATION
  Report Type: 
  Country: TR (occurrence: TR)
  Receive Date: 20121101
  Receipt Date: 20121101
  Transmission Date: 20130627
  Serious: Yes (Other)
  Sender: FDA-Public Use
  Company Number: TR-ROCHE-1146698

PATIENT
  Age: 60 Year
  Sex: Male
  Weight: 70 kg

DRUGS (1)
  1. CAPECITABINE [Suspect]
     Indication: GALLBLADDER CANCER
     Dosage: 500 mg 2+2
     Route: 065
     Dates: start: 20120606, end: 20121008

REACTIONS (1)
  - Cerebral artery occlusion [Not Recovered/Not Resolved]
